FAERS Safety Report 7370224-2 (Version None)
Quarter: 2011Q1

REPORT INFORMATION
  Report Type: 
  Country: None (occurrence: None)
  Receive Date: 20110323
  Receipt Date: 20100812
  Transmission Date: 20110831
  Serious: No
  Sender: FDA-Public Use
  Company Number: US-ASTRAZENECA-2010SE37997

PATIENT
  Age: 64 Year
  Sex: Female

DRUGS (2)
  1. SEROQUEL [Suspect]
     Indication: EMOTIONAL DISORDER
     Route: 048
     Dates: start: 20040101
  2. LISINOPRIL [Suspect]
     Route: 048

REACTIONS (1)
  - OROPHARYNGEAL PAIN [None]
